FAERS Safety Report 8419927 (Version 4)
Quarter: 2013Q1

REPORT INFORMATION
  Report Type: Spontaneous
  Country: US (occurrence: US)
  Receive Date: 20120222
  Receipt Date: 20130214
  Transmission Date: 20140127
  Serious: Yes (Death, Hospitalization)
  Sender: FDA-Public Use
  Company Number: US-JNJFOC-20120207150

PATIENT
  Age: 67 None
  Sex: Male
  Weight: 99.79 kg

DRUGS (23)
  1. REMICADE [Suspect]
     Indication: COLITIS ULCERATIVE
     Route: 042
     Dates: start: 20101216, end: 20120127
  2. REMICADE [Suspect]
     Indication: COLITIS ULCERATIVE
     Route: 042
     Dates: start: 201011, end: 20120105
  3. PREDNISONE [Suspect]
     Indication: DIARRHOEA
     Route: 065
     Dates: start: 20111123
  4. PREDNISONE [Suspect]
     Indication: DIARRHOEA
     Route: 065
     Dates: start: 201107
  5. ASPIRIN [Concomitant]
     Dosage: 1X
     Route: 065
  6. VITAMIN B12 [Concomitant]
     Dosage: 1X
     Route: 065
  7. BENICAR [Concomitant]
     Dosage: 1X
     Route: 065
  8. BYSTOLIC [Concomitant]
     Dosage: 1X
     Route: 065
  9. CENTRUM CARDIO [Concomitant]
     Dosage: 1X
     Route: 065
  10. KLONOPIN [Concomitant]
     Dosage: 2X
     Route: 065
  11. FLOVENT [Concomitant]
     Dosage: 1X
     Route: 065
  12. ALL OTHER THERAPEUTICS [Concomitant]
     Dosage: 1X ??DOSE: 5000 (UNITS UNSPECIFIED)
     Route: 065
  13. FOLIC ACID [Concomitant]
     Dosage: 1X
     Route: 065
  14. FUROSEMIDE [Concomitant]
     Dosage: 1X
     Route: 065
  15. COENZYME Q10 [Concomitant]
     Dosage: 1X
     Route: 065
  16. LIPITOR [Concomitant]
     Dosage: 1X
     Route: 065
  17. NIACIN [Concomitant]
     Dosage: 2X
     Route: 065
  18. PAXIL [Concomitant]
     Dosage: 1X
     Route: 065
  19. POTASSIUM [Concomitant]
     Dosage: 1X??DOSE: 10 MEQ ER
     Route: 065
  20. PREDNISONE [Concomitant]
     Dosage: 2X
     Route: 065
  21. PRILOSEC [Concomitant]
     Dosage: 1X
     Route: 065
  22. PRO-AIR [Concomitant]
     Dosage: 1X
     Route: 065
  23. OMEGA 3-6-9 [Concomitant]
     Dosage: 1X
     Route: 065

REACTIONS (5)
  - Chronic obstructive pulmonary disease [Fatal]
  - Myocardial infarction [Fatal]
  - Colitis ulcerative [Unknown]
  - Diarrhoea [Unknown]
  - Weight increased [Unknown]
